FAERS Safety Report 5726212-2 (Version None)
Quarter: 2008Q2

REPORT INFORMATION
  Report Type: 
  Country: None (occurrence: None)
  Receive Date: 20080502
  Receipt Date: 20080422
  Transmission Date: 20081010
  Serious: Yes (Other)
  Sender: FDA-Public Use
  Company Number: US-JNJFOC-20080406722

PATIENT
  Sex: Female
  Weight: 77.11 kg

DRUGS (5)
  1. FENTANYL TRANSDERMAL SYSTEM [Suspect]
     Route: 062
  2. FENTANYL TRANSDERMAL SYSTEM [Suspect]
     Indication: ABDOMINAL PAIN
     Route: 062
  3. FENTANYL TRANSDERMAL SYSTEM [Suspect]
     Indication: MIGRAINE
     Route: 062
  4. DURAGESIC-100 [Suspect]
     Indication: MIGRAINE
     Route: 062
  5. XANAX XR [Concomitant]
     Indication: ANXIETY
     Dosage: 3 MG, 1 IN AM, 1 IN PM
     Route: 048

REACTIONS (13)
  - BIPOLAR DISORDER [None]
  - DEPRESSION [None]
  - DIARRHOEA [None]
  - DRUG ADMINISTERED AT INAPPROPRIATE SITE [None]
  - HEADACHE [None]
  - HYPERHIDROSIS [None]
  - INSOMNIA [None]
  - INTERVERTEBRAL DISC PROTRUSION [None]
  - MUSCLE SPASMS [None]
  - PANCREATITIS [None]
  - SKIN DISORDER [None]
  - URINARY TRACT INFECTION [None]
  - WEIGHT INCREASED [None]
